FAERS Safety Report 15821903 (Version 1)
Quarter: 2018Q4

REPORT INFORMATION
  Report Type: Spontaneous
  Country: US (occurrence: US)
  Receive Date: 20181214
  Receipt Date: 20181214
  Transmission Date: 20190205
  Serious: No
  Sender: FDA-Public Use
  Company Number: None

PATIENT
  Age: 63 Year
  Sex: Female

DRUGS (1)
  1. PROCRIT [Suspect]
     Active Substance: ERYTHROPOIETIN
     Dosage: ?          OTHER STRENGTH:10000U/MLX 2 ML;?

REACTIONS (2)
  - Product dose omission [None]
  - Product distribution issue [None]

NARRATIVE: CASE EVENT DATE: 20181016
